FAERS Safety Report 7717060-2 (Version None)
Quarter: 2011Q3

REPORT INFORMATION
  Report Type: 
  Country: None (occurrence: None)
  Receive Date: 20110830
  Receipt Date: 20110825
  Transmission Date: 20111222
  Serious: Yes (Hospitalization)
  Sender: FDA-Public Use
  Company Number: US-BRISTOL-MYERS SQUIBB COMPANY-15754443

PATIENT
  Age: 60 Year
  Sex: Male
  Weight: 88 kg

DRUGS (15)
  1. IPILIMUMAB [Suspect]
     Indication: MALIGNANT MELANOMA
     Route: 042
     Dates: start: 20100715, end: 20110516
  2. MILK THISTLE [Concomitant]
     Indication: PROPHYLAXIS
     Route: 048
     Dates: start: 20000601
  3. GRAPESEED EXTRACT [Concomitant]
     Indication: PROPHYLAXIS
     Route: 048
     Dates: start: 20000101
  4. CLARITIN [Concomitant]
     Indication: HYPERSENSITIVITY
     Route: 048
     Dates: start: 20110311
  5. LOVENOX [Concomitant]
     Route: 058
  6. AMBIEN [Concomitant]
     Indication: INSOMNIA
     Dosage: 1DF:12TABS
     Dates: start: 20100201
  7. ZOFRAN [Concomitant]
     Route: 042
  8. COLACE [Concomitant]
     Dosage: Q12 PRN
     Route: 048
  9. PREDNISONE [Concomitant]
     Route: 048
  10. CALCIUM CARBONATE [Concomitant]
     Indication: MEDICAL DIET
     Route: 048
     Dates: start: 20000101
  11. VITAMIN B COMPLEX CAP [Concomitant]
     Dosage: 1DF:4TABS
     Dates: start: 20100101
  12. PROTONIX [Concomitant]
     Route: 048
  13. TYLENOL-500 [Concomitant]
     Indication: PYREXIA
     Dosage: Q6 PRN
     Route: 048
  14. VITAMIN D [Concomitant]
     Indication: MEDICAL DIET
     Route: 048
     Dates: start: 20050101
  15. SOLU-MEDROL [Concomitant]
     Route: 042

REACTIONS (13)
  - DIVERTICULUM [None]
  - IRON DEFICIENCY ANAEMIA [None]
  - CARDIOMEGALY [None]
  - COLITIS [None]
  - GASTROINTESTINAL ULCER [None]
  - DEHYDRATION [None]
  - WEIGHT DECREASED [None]
  - PYREXIA [None]
  - HAEMORRHOIDS [None]
  - HYPERGLYCAEMIA [None]
  - FAILURE TO THRIVE [None]
  - DECREASED APPETITE [None]
  - ASTHENIA [None]
